FAERS Safety Report 24253084 (Version 1)
Quarter: 2024Q3

REPORT INFORMATION
  Report Type: Spontaneous
  Country: FR (occurrence: FR)
  Receive Date: 20240827
  Receipt Date: 20240827
  Transmission Date: 20241016
  Serious: Yes (Hospitalization)
  Sender: CHEPLAPHARM
  Company Number: None

PATIENT
  Age: 13 Year
  Sex: Male

DRUGS (4)
  1. CLONAZEPAM [Suspect]
     Active Substance: CLONAZEPAM
     Dosage: 7 TABLETS OF CLONAZEPAM/AT A RATE OF ONE TABLET EVERY 10 TO 30 MINUTES
     Route: 048
     Dates: start: 20240716
  2. CLONAZEPAM [Suspect]
     Active Substance: CLONAZEPAM
     Dosage: CHRONIC CONSUMPTION OF THESE TWO MOLECULES.
     Route: 048
  3. PREGABALIN [Suspect]
     Active Substance: PREGABALIN
     Dosage: 7 TABLETS OF PREGABALIN /AT A RATE OF ONE TABLET EVERY 10 TO 30 MINUTES
     Route: 048
     Dates: start: 20240716
  4. PREGABALIN [Suspect]
     Active Substance: PREGABALIN
     Dosage: CHRONIC CONSUMPTION OF THESE TWO MOLECULES.
     Route: 048

REACTIONS (3)
  - Drug abuse [Unknown]
  - Atrioventricular block [Recovered/Resolved]
  - Somnolence [Recovered/Resolved]

NARRATIVE: CASE EVENT DATE: 20240701
